APPROVED DRUG PRODUCT: ISONIAZID
Active Ingredient: ISONIAZID
Strength: 100MG
Dosage Form/Route: TABLET;ORAL
Application: A040090 | Product #001 | TE Code: AA
Applicant: OMNIVIUM PHARMACEUTICALS LLC
Approved: Jun 26, 1997 | RLD: No | RS: Yes | Type: RX